FAERS Safety Report 22536726 (Version 1)
Quarter: 2023Q2

REPORT INFORMATION
  Report Type: Spontaneous
  Country: US (occurrence: US)
  Receive Date: 20230608
  Receipt Date: 20230608
  Transmission Date: 20230722
  Serious: Yes (Other)
  Sender: FDA-Public Use
  Company Number: US-SUN PHARMACEUTICAL INDUSTRIES LTD-2023R1-393533

PATIENT

DRUGS (4)
  1. FUROSEMIDE [Suspect]
     Active Substance: FUROSEMIDE
     Indication: Glomerulonephritis membranous
     Dosage: UNK
     Route: 065
  2. HYDROCHLOROTHIAZIDE [Suspect]
     Active Substance: HYDROCHLOROTHIAZIDE
     Indication: Glomerulonephritis membranous
     Dosage: UNK
     Route: 065
  3. LOSARTAN [Suspect]
     Active Substance: LOSARTAN
     Indication: Glomerulonephritis membranous
     Dosage: UNK
     Route: 065
  4. AMILORIDE [Suspect]
     Active Substance: AMILORIDE
     Indication: Glomerulonephritis membranous
     Dosage: UNK
     Route: 065

REACTIONS (1)
  - Condition aggravated [Unknown]
